FAERS Safety Report 4415849-9 (Version None)
Quarter: 2004Q3

REPORT INFORMATION
  Report Type: 
  Country: None (occurrence: None)
  Receive Date: 20040730
  Receipt Date: 20040716
  Transmission Date: 20050211
  Serious: Yes (Hospitalization, Other)
  Sender: FDA-Public Use
  Company Number: CA-SHR-04-024407

PATIENT
  Age: 64 Year
  Sex: Female

DRUGS (12)
  1. BETASERON [Suspect]
     Indication: PROGRESSIVE MULTIPLE SCLEROSIS
     Dosage: 8 MIU, EVERY 2D, SUBCUTANEOUS
     Route: 058
     Dates: start: 20000721
  2. ASAPHEN (ACETYLSALICYLIC ACID) COATED TABLET [Concomitant]
  3. APO-AMITRIPTYLINE [Concomitant]
  4. APO-DIAZEPAM (DIAZEPAM) [Concomitant]
  5. APO-FUROSEMIDE [Concomitant]
  6. GABAPENTIN [Concomitant]
  7. PLAVIX [Concomitant]
  8. NITRAZADON (NITRAZEPAM) [Concomitant]
  9. NORVASC /DEN/ (AMLODIPINE BESILATE) [Concomitant]
  10. FERROUS SULFATE TAB [Concomitant]
  11. NAPROXEN [Concomitant]
  12. ZOCOR ^MERCK FROSST^ (SIMVASTATIN) [Concomitant]

REACTIONS (14)
  - ANAEMIA [None]
  - ANGINA PECTORIS [None]
  - BLADDER OBSTRUCTION [None]
  - BLOOD URINE [None]
  - COGNITIVE DISORDER [None]
  - DIARRHOEA [None]
  - DYSPNOEA [None]
  - HYDRONEPHROSIS [None]
  - HYPERTENSION [None]
  - INCONTINENCE [None]
  - OEDEMA PERIPHERAL [None]
  - TREMOR [None]
  - TRIPLE VESSEL BYPASS GRAFT [None]
  - URINARY TRACT INFECTION [None]
